FAERS Safety Report 8417948-3 (Version None)
Quarter: 2012Q2

REPORT INFORMATION
  Report Type: 
  Country: None (occurrence: None)
  Receive Date: 20120601
  Receipt Date: 20120601
  Transmission Date: 20120825
  Serious: Yes (Life-Threatening)
  Sender: FDA-Public Use
  Company Number: None

PATIENT
  Age: 44 Year
  Sex: Male
  Weight: 62.1428 kg

DRUGS (1)
  1. DIVALPROEX SODIUM [Suspect]
     Indication: CONVULSION
     Dosage: 500MG 4 QAM 5 QHS PO
     Route: 048
     Dates: start: 20120423, end: 20120521

REACTIONS (3)
  - DRUG LEVEL DECREASED [None]
  - CONVULSION [None]
  - PRODUCT SUBSTITUTION ISSUE [None]
